FAERS Safety Report 5815365-3 (Version None)
Quarter: 2008Q3

REPORT INFORMATION
  Report Type: 
  Country: None (occurrence: None)
  Receive Date: 20080718
  Receipt Date: 20080714
  Transmission Date: 20090109
  Serious: Yes (Hospitalization, Other)
  Sender: FDA-Public Use
  Company Number: US-PFIZER INC-2008043674

PATIENT
  Sex: Female
  Weight: 56.818 kg

DRUGS (8)
  1. CHANTIX [Suspect]
     Indication: SMOKING CESSATION THERAPY
  2. ANTISEPTICS AND DISINFECTANTS [Suspect]
  3. NEXIUM [Concomitant]
  4. PROZAC [Concomitant]
  5. RISPERDAL [Concomitant]
  6. TRAZODONE HCL [Concomitant]
  7. TOPAMAX [Concomitant]
  8. WELLBUTRIN [Concomitant]
     Dosage: DAILY DOSE:450MG-FREQ:DAILY

REACTIONS (5)
  - ERYTHEMA [None]
  - OEDEMA PERIPHERAL [None]
  - PRURITUS [None]
  - SPINAL OPERATION [None]
  - URTICARIA [None]
